FAERS Safety Report 8624235-7 (Version None)
Quarter: 2012Q3

REPORT INFORMATION
  Report Type: 
  Country: None (occurrence: None)
  Receive Date: 20120824
  Receipt Date: 20120824
  Transmission Date: 20120928
  Serious: Yes (Life-Threatening, Other)
  Sender: FDA-Public Use
  Company Number: None

PATIENT
  Age: 65 Year
  Sex: Female
  Weight: 63.5036 kg

DRUGS (3)
  1. NARATRIPTAN [Suspect]
     Indication: MIGRAINE
     Dosage: 2.5 MG Q 4 HRS OCCLUSIVE
     Route: 046
     Dates: start: 20120805, end: 20120818
  2. GENERIC ZITHROMAX [Concomitant]
  3. GENERIC DIFLUCAN [Concomitant]

REACTIONS (3)
  - CONVULSION [None]
  - PRODUCT SUBSTITUTION ISSUE [None]
  - SYNCOPE [None]
